FAERS Safety Report 13190943 (Version 1)
Quarter: 2017Q1

REPORT INFORMATION
  Report Type: Spontaneous
  Country: TH (occurrence: TH)
  Receive Date: 20170206
  Receipt Date: 20170206
  Transmission Date: 20170428
  Serious: Yes (Other)
  Sender: FDA-Public Use
  Company Number: TH-MACLEODS PHARMACEUTICALS US LTD-MAC2017004285

PATIENT

DRUGS (2)
  1. DONEPEZIL. [Suspect]
     Active Substance: DONEPEZIL
     Dosage: 10 MG, QD
     Route: 065
  2. DONEPEZIL. [Suspect]
     Active Substance: DONEPEZIL
     Indication: DEMENTIA ALZHEIMER^S TYPE
     Dosage: 23 MG, QD
     Route: 065

REACTIONS (3)
  - Muscle rigidity [Recovering/Resolving]
  - Tremor [Recovering/Resolving]
  - Parkinsonism [Recovering/Resolving]
